FAERS Safety Report 7494589-6 (Version None)
Quarter: 2011Q2

REPORT INFORMATION
  Report Type: 
  Country: None (occurrence: None)
  Receive Date: 20110520
  Receipt Date: 20110516
  Transmission Date: 20111010
  Serious: Yes (Death, Hospitalization, Other)
  Sender: FDA-Public Use
  Company Number: PHHY2011DE41737

PATIENT
  Sex: Male

DRUGS (5)
  1. ALISKIREN [Suspect]
     Indication: HYPERTENSION
     Dosage: UNK
     Route: 048
     Dates: start: 20090409, end: 20100101
  2. CALCIUM ANTAGONIST [Concomitant]
  3. DIURETICS [Concomitant]
  4. ORAL ANTIDIABETICS [Concomitant]
     Indication: DIABETES MELLITUS
  5. NSAID'S [Concomitant]

REACTIONS (8)
  - TRANSIENT ISCHAEMIC ATTACK [None]
  - ACUTE MYOCARDIAL INFARCTION [None]
  - VENTRICULAR FIBRILLATION [None]
  - CARDIOGENIC SHOCK [None]
  - BLOOD PRESSURE DECREASED [None]
  - RENAL FAILURE [None]
  - ELECTROCARDIOGRAM QRS COMPLEX PROLONGED [None]
  - LUNG INFECTION [None]
